FAERS Safety Report 7438508-7 (Version None)
Quarter: 2011Q2

REPORT INFORMATION
  Report Type: 
  Country: None (occurrence: None)
  Receive Date: 20110426
  Receipt Date: 20110327
  Transmission Date: 20111010
  Serious: No
  Sender: FDA-Public Use
  Company Number: US-BAYER-2011-027979

PATIENT
  Age: 70 Year
  Sex: Female
  Weight: 58 kg

DRUGS (3)
  1. KLONOPIN [Concomitant]
  2. ALEVE (CAPLET) [Suspect]
     Dosage: 3 DF, ONCE
     Route: 048
     Dates: start: 20110327, end: 20110327
  3. ATIVAN [Concomitant]

REACTIONS (1)
  - NO ADVERSE EVENT [None]
